FAERS Safety Report 9155551 (Version 1)
Quarter: 2013Q1

REPORT INFORMATION
  Report Type: Spontaneous
  Country: US (occurrence: US)
  Receive Date: 20130311
  Receipt Date: 20130311
  Transmission Date: 20140127
  Serious: Yes (Hospitalization)
  Sender: FDA-Public Use
  Company Number: US-GLAXOSMITHKLINE-A1014619A

PATIENT
  Age: 18 Year
  Sex: Male

DRUGS (3)
  1. LAMOTRIGINE [Suspect]
     Indication: BIPOLAR DISORDER
     Dosage: 600MG TWICE PER DAY
     Route: 048
     Dates: end: 201109
  2. ADDERALL XR [Concomitant]
  3. ABILIFY [Concomitant]

REACTIONS (5)
  - Urticaria [Recovered/Resolved]
  - Photosensitivity reaction [Recovered/Resolved]
  - Sunburn [Recovered/Resolved]
  - Headache [Recovered/Resolved]
  - Rash [Recovered/Resolved]
